FAERS Safety Report 25179514 (Version 2)
Quarter: 2025Q2

REPORT INFORMATION
  Report Type: Spontaneous
  Country: US (occurrence: US)
  Receive Date: 20250409
  Receipt Date: 20250505
  Transmission Date: 20250716
  Serious: No
  Sender: CALLIDITAS THERAPEUTICS AB
  Company Number: US-Calliditas-2025CAL00296

PATIENT
  Age: 87 Year
  Sex: Female

DRUGS (10)
  1. TARPEYO [Suspect]
     Active Substance: BUDESONIDE
     Indication: IgA nephropathy
     Route: 048
     Dates: start: 20250104, end: 202504
  2. BUMEX [Concomitant]
     Active Substance: BUMETANIDE
  3. CLONIDINE [Concomitant]
     Active Substance: CLONIDINE
  4. FARXIGA [Concomitant]
     Active Substance: DAPAGLIFLOZIN PROPANEDIOL
  5. LABETALOL [Concomitant]
     Active Substance: LABETALOL
  6. XANAX [Concomitant]
     Active Substance: ALPRAZOLAM
  7. ZOCOR [Concomitant]
     Active Substance: SIMVASTATIN
  8. OLMESARTAN [Concomitant]
     Active Substance: OLMESARTAN
  9. TORSEMIDE [Concomitant]
     Active Substance: TORSEMIDE
  10. METOLAZONE [Concomitant]
     Active Substance: METOLAZONE

REACTIONS (4)
  - Peripheral swelling [Unknown]
  - Inappropriate schedule of product administration [Recovered/Resolved]
  - Drug ineffective [Unknown]
  - Blood pressure increased [Unknown]

NARRATIVE: CASE EVENT DATE: 20241101
